FAERS Safety Report 5311388-1 (Version None)
Quarter: 2007Q2

REPORT INFORMATION
  Report Type: 
  Country: None (occurrence: None)
  Receive Date: 20070430
  Receipt Date: 20050816
  Transmission Date: 20071010
  Serious: Yes (Death, Hospitalization)
  Sender: FDA-Public Use
  Company Number: AU-JNJFOC-20070406118

PATIENT
  Age: 92 Year
  Sex: Male
  Weight: 83 kg

DRUGS (9)
  1. REOPRO [Suspect]
     Indication: PERCUTANEOUS CORONARY INTERVENTION
  2. ASPIRIN [Concomitant]
     Indication: ANTIPLATELET THERAPY
  3. FRUSEMIDE [Concomitant]
     Indication: DIURETIC THERAPY
  4. AMIODARONE HCL [Concomitant]
  5. SLOW-K [Concomitant]
     Indication: HYPOKALAEMIA
  6. NEXIUM [Concomitant]
     Indication: GASTROOESOPHAGEAL REFLUX DISEASE
  7. HEPARIN [Concomitant]
     Indication: THROMBOSIS PROPHYLAXIS
  8. DOPAMINE HCL [Concomitant]
     Indication: RENAL FAILURE
  9. IRBESARTAN [Concomitant]
     Indication: HYPERTENSION

REACTIONS (4)
  - ANAEMIA [None]
  - HAEMATURIA [None]
  - HYPOTENSION [None]
  - UPPER GASTROINTESTINAL HAEMORRHAGE [None]
